FAERS Safety Report 20346101 (Version 3)
Quarter: 2024Q4

REPORT INFORMATION
  Report Type: Report from Study
  Country: CO (occurrence: CO)
  Receive Date: 20220118
  Receipt Date: 20241008
  Transmission Date: 20250115
  Serious: Yes (Disabling, Other)
  Sender: NOVARTIS
  Company Number: CO-NOVARTISPH-NVSC2021CO298250

PATIENT
  Sex: Female
  Weight: 73 kg

DRUGS (7)
  1. KISQALI [Suspect]
     Active Substance: RIBOCICLIB
     Indication: Hormone receptor positive HER2 negative breast cancer
     Dosage: 600 MG, QD
     Route: 048
     Dates: start: 20210930
  2. KISQALI [Suspect]
     Active Substance: RIBOCICLIB
     Indication: Breast cancer metastatic
     Dosage: 400 MG, QD (2 TABLETS OF 200 MG)
     Route: 048
     Dates: start: 202109
  3. KISQALI [Suspect]
     Active Substance: RIBOCICLIB
     Dosage: UNK (FROM DEC)
     Route: 048
  4. KISQALI [Suspect]
     Active Substance: RIBOCICLIB
     Dosage: UNK
     Route: 048
     Dates: start: 20240930
  5. FEMARA [Suspect]
     Active Substance: LETROZOLE
     Indication: Breast cancer
     Dosage: 2.5 MG, QD
     Route: 048
  6. FEMARA [Suspect]
     Active Substance: LETROZOLE
     Dosage: UNK
     Route: 048
     Dates: start: 202109, end: 202202
  7. ANASTROZOLE [Concomitant]
     Active Substance: ANASTROZOLE
     Indication: Product used for unknown indication
     Dosage: 1 DOSAGE FORM, QD
     Route: 065
     Dates: start: 202202

REACTIONS (11)
  - Pain in extremity [Unknown]
  - Hepatotoxicity [Unknown]
  - Transaminases increased [Unknown]
  - Neutropenia [Unknown]
  - Anxiety [Unknown]
  - Depressed mood [Unknown]
  - Drug intolerance [Unknown]
  - Madarosis [Unknown]
  - Tachycardia [Unknown]
  - Neuralgia [Unknown]
  - Malaise [Unknown]
